FAERS Safety Report 23863087 (Version 1)
Quarter: 2024Q2

REPORT INFORMATION
  Report Type: Spontaneous
  Country: US (occurrence: US)
  Receive Date: 20240516
  Receipt Date: 20240516
  Transmission Date: 20240716
  Serious: Yes (Other)
  Sender: FDA-Public Use
  Company Number: US-SA-2024SA136160

PATIENT
  Age: 9 Year
  Sex: Female

DRUGS (6)
  1. INSULIN ASPART [Suspect]
     Active Substance: INSULIN ASPART
     Indication: Type 1 diabetes mellitus
     Dosage: UNK
     Route: 058
  2. INSULIN GLARGINE [Suspect]
     Active Substance: INSULIN GLARGINE
     Dosage: UNK
  3. MYCOPHENOLIC ACID [Concomitant]
     Active Substance: MYCOPHENOLIC ACID
     Indication: Immunosuppression
     Dosage: 300 MG, BID
  4. MYCOPHENOLIC ACID [Concomitant]
     Active Substance: MYCOPHENOLIC ACID
     Dosage: 750 MG, QD (500 MG AM AND 250 MG PM)
  5. MYCOPHENOLIC ACID [Concomitant]
     Active Substance: MYCOPHENOLIC ACID
     Dosage: TAPERED OFFUNK
  6. HYDROXYZINE [Concomitant]
     Active Substance: HYDROXYZINE HYDROCHLORIDE
     Dosage: UNK

REACTIONS (11)
  - Chronic spontaneous urticaria [Recovered/Resolved]
  - Injection site erythema [Recovered/Resolved]
  - Eosinophilia [Recovered/Resolved]
  - Lymphocytic infiltration [Recovered/Resolved]
  - Urticaria [Recovered/Resolved]
  - Rash [Recovered/Resolved]
  - Rash pruritic [Recovered/Resolved]
  - Rash maculo-papular [Recovered/Resolved]
  - Angioedema [Recovered/Resolved]
  - Rash erythematous [Recovered/Resolved]
  - Skin plaque [Recovered/Resolved]
